FAERS Safety Report 24596208 (Version 1)
Quarter: 2024Q4

REPORT INFORMATION
  Report Type: Spontaneous
  Country: CH (occurrence: CH)
  Receive Date: 20241110
  Receipt Date: 20241110
  Transmission Date: 20250115
  Serious: Yes (Hospitalization)
  Sender: ACCORD
  Company Number: None

PATIENT
  Age: 60 Year
  Sex: Female
  Weight: 60.6 kg

DRUGS (29)
  1. CARBOPLATIN [Suspect]
     Active Substance: CARBOPLATIN
     Indication: Ovarian epithelial cancer stage III
     Dosage: 630 MG, INTRAVENOUS BOLUS
     Route: 042
     Dates: start: 20240507, end: 20240507
  2. PACLITAXEL [Suspect]
     Active Substance: PACLITAXEL
     Indication: Ovarian epithelial cancer stage III
     Dosage: 290 MG, INTRAVENOUS BOLUS
     Route: 042
     Dates: start: 20240507, end: 20240507
  3. CEFTRIAXONE SODIUM [Suspect]
     Active Substance: CEFTRIAXONE SODIUM
     Indication: Staphylococcal infection
     Dosage: 2 G ONCE DAILY FROM 29-MAY TO 01-JUN
     Dates: start: 20240529, end: 20240601
  4. CEFAZOLIN SODIUM [Suspect]
     Active Substance: CEFAZOLIN SODIUM
     Indication: Peritonitis bacterial
     Dosage: 2 G EVERY 8 HOURS FROM 30-MAY TO 31-MAY
     Dates: start: 20240530, end: 20240531
  5. CEFEPIME HYDROCHLORIDE [Suspect]
     Active Substance: CEFEPIME HYDROCHLORIDE
     Indication: Peritonitis bacterial
     Dosage: 2 G TWICE DAILY FROM 03-JUN TO 14-JUN
     Dates: start: 20240603, end: 20240614
  6. FLAGYL [Suspect]
     Active Substance: METRONIDAZOLE\METRONIDAZOLE HYDROCHLORIDE
     Indication: Peritonitis bacterial
     Dosage: 500 MG EVERY 8 HOURS FROM 09-JUN TO 14-JUN
     Route: 048
     Dates: start: 20240609, end: 20240614
  7. KETOROLAC TROMETHAMINE [Suspect]
     Active Substance: KETOROLAC TROMETHAMINE
     Indication: Product used for unknown indication
     Dosage: INJECTED SEVERAL TIMES SINCE EARLY MAY-2024
     Dates: start: 202405
  8. ENOXAPARIN SODIUM [Suspect]
     Active Substance: ENOXAPARIN SODIUM
     Indication: Product used for unknown indication
     Dosage: 40 MG ONCE DAILY, DURING VARIOUS HOSPITALIZATIONS
     Dates: start: 20240429
  9. EMEND [Concomitant]
     Active Substance: APREPITANT
     Dosage: 125 MG
     Route: 048
  10. ONDANSETRON HYDROCHLORIDE [Concomitant]
     Active Substance: ONDANSETRON HYDROCHLORIDE
     Dosage: 8 MG
     Route: 042
  11. CLEMASTINE FUMARATE [Concomitant]
     Active Substance: CLEMASTINE FUMARATE
     Dosage: 2 MG
     Route: 042
  12. PRAMIPEXOLE [Concomitant]
     Active Substance: PRAMIPEXOLE\PRAMIPEXOLE DIHYDROCHLORIDE
     Dosage: 1 MG IN THE MORNING, 2 MG IN THE EVENING
  13. MYCOSTATIN [Concomitant]
     Active Substance: NYSTATIN
     Dates: start: 20240508
  14. ALBUMIN HUMAN [Concomitant]
     Active Substance: ALBUMIN HUMAN
     Dates: start: 20240528
  15. DIATRIZOATE SODIUM [Concomitant]
     Active Substance: DIATRIZOATE SODIUM
     Dates: start: 20240601
  16. BUTYLSCOPOLAMINE BROMIDE [Concomitant]
     Active Substance: BUTYLSCOPOLAMINE BROMIDE
     Dates: start: 20240606
  17. MORPHINE HYDROCHLORIDE [Concomitant]
     Active Substance: MORPHINE HYDROCHLORIDE
     Dates: start: 20240529, end: 20240606
  18. DAFALGAN [Concomitant]
     Active Substance: ACETAMINOPHEN
     Dates: start: 20240530, end: 20240606
  19. THIAMINE HYDROCHLORIDE [Concomitant]
     Active Substance: THIAMINE HYDROCHLORIDE
     Dates: start: 20240607, end: 20240609
  20. OCTREOTIDE ACETATE [Concomitant]
     Active Substance: OCTREOTIDE ACETATE
     Dates: start: 20240601, end: 20240604
  21. LACTITOL [Concomitant]
     Active Substance: LACTITOL
     Dates: start: 20240602
  22. RIOPAN [Concomitant]
     Dates: start: 20240609
  23. TEMESTA [Concomitant]
     Dates: start: 20240601
  24. DEXAMETHASONE [Concomitant]
     Active Substance: DEXAMETHASONE
     Dosage: 20 MG
     Route: 042
  25. EMEND [Concomitant]
     Active Substance: APREPITANT
     Dosage: 80 MG
     Route: 048
     Dates: start: 20240508
  26. EMEND [Concomitant]
     Active Substance: APREPITANT
     Dosage: 80 MG
     Route: 048
     Dates: start: 20240509
  27. PACLITAXEL [Suspect]
     Active Substance: PACLITAXEL
     Indication: Ovarian epithelial cancer stage III
     Dosage: INTRAVENOUS BOLUS
     Route: 042
     Dates: start: 20240619, end: 20240619
  28. CARBOPLATIN [Suspect]
     Active Substance: CARBOPLATIN
     Indication: Ovarian epithelial cancer stage III
     Dosage: INTRAVENOUS BOLUS
     Route: 042
     Dates: start: 20240619, end: 20240619
  29. KETOROLAC TROMETHAMINE [Suspect]
     Active Substance: KETOROLAC TROMETHAMINE
     Indication: Product used for unknown indication
     Dates: start: 20240529, end: 20240529

REACTIONS (1)
  - Thrombotic microangiopathy [Not Recovered/Not Resolved]

NARRATIVE: CASE EVENT DATE: 20240617
